FAERS Safety Report 14137512 (Version 5)
Quarter: 2018Q1

REPORT INFORMATION
  Report Type: Spontaneous
  Country: ES (occurrence: ES)
  Receive Date: 20171027
  Receipt Date: 20180118
  Transmission Date: 20180508
  Serious: Yes (Life-Threatening)
  Sender: FDA-Public Use
  Company Number: ES-JNJFOC-20171016725

PATIENT
  Sex: Female

DRUGS (3)
  1. SEPTRIN [Concomitant]
     Active Substance: SULFAMETHOXAZOLE\TRIMETHOPRIM
     Dosage: MONDAY AND THURSDAY
     Route: 065
  2. ACFOL [Concomitant]
     Active Substance: FOLIC ACID
     Indication: PROPHYLAXIS
     Route: 065
  3. IMBRUVICA [Suspect]
     Active Substance: IBRUTINIB
     Indication: CHRONIC LYMPHOCYTIC LEUKAEMIA
     Route: 048
     Dates: start: 20170922

REACTIONS (6)
  - Skin toxicity [Unknown]
  - Eosinophil count decreased [Unknown]
  - Eating disorder [Unknown]
  - Wound [Recovered/Resolved]
  - White blood cell count increased [Unknown]
  - Odynophagia [Unknown]
